FAERS Safety Report 20246837 (Version 1)
Quarter: 2021Q4

REPORT INFORMATION
  Report Type: Spontaneous
  Country: US (occurrence: None)
  Receive Date: 20211228
  Receipt Date: 20211228
  Transmission Date: 20220304
  Serious: Yes (Hospitalization)
  Sender: FDA-Public Use
  Company Number: None

PATIENT
  Age: 52 Year
  Sex: Male
  Weight: 30.14 kg

DRUGS (1)
  1. CASIRIVIMAB\IMDEVIMAB [Suspect]
     Active Substance: CASIRIVIMAB\IMDEVIMAB
     Indication: SARS-CoV-2 antibody test positive
     Route: 041
     Dates: start: 20211126, end: 20211126

REACTIONS (2)
  - Dyspnoea [None]
  - Lung infiltration [None]

NARRATIVE: CASE EVENT DATE: 20211126
